FAERS Safety Report 9788287 (Version 1)
Quarter: 2013Q4

REPORT INFORMATION
  Report Type: Report from Study
  Country: FR (occurrence: FR)
  Receive Date: 20131230
  Receipt Date: 20131230
  Transmission Date: 20140711
  Serious: Yes (Hospitalization)
  Sender: FDA-Public Use
  Company Number: PHHY2013FR150227

PATIENT
  Age: 60 Year
  Sex: Female

DRUGS (1)
  1. MYCOPHENOLIC ACID [Suspect]
     Dosage: 540 MG, BID
     Route: 048
     Dates: start: 20130615

REACTIONS (3)
  - Pulmonary oedema [Recovered/Resolved]
  - Weight increased [Unknown]
  - Oedema peripheral [Unknown]
